FAERS Safety Report 7675145-3 (Version None)
Quarter: 2011Q3

REPORT INFORMATION
  Report Type: 
  Country: None (occurrence: None)
  Receive Date: 20110810
  Receipt Date: 20110803
  Transmission Date: 20111222
  Serious: Yes (Death, Hospitalization, Other)
  Sender: FDA-Public Use
  Company Number: JP-BRISTOL-MYERS SQUIBB COMPANY-15822687

PATIENT
  Age: 79 Year
  Sex: Female
  Weight: 49 kg

DRUGS (4)
  1. ATELEC [Concomitant]
     Route: 048
     Dates: start: 20100924, end: 20110615
  2. SPRYCEL [Suspect]
     Indication: ACUTE LYMPHOCYTIC LEUKAEMIA
     Dosage: ALSO FROM 28MAY11 TO 01JUN11
     Route: 048
     Dates: start: 20110528, end: 20110601
  3. FRANDOL [Concomitant]
     Dosage: TABS/ROUTE TDER
     Route: 062
     Dates: start: 20100924, end: 20110621
  4. LANIRAPID [Concomitant]
     Route: 048
     Dates: start: 20100924, end: 20110615

REACTIONS (6)
  - PLATELET COUNT DECREASED [None]
  - ANAEMIA [None]
  - VENTRICULAR FIBRILLATION [None]
  - WHITE BLOOD CELL COUNT DECREASED [None]
  - NEOPLASM MALIGNANT [None]
  - NEUTROPHIL COUNT DECREASED [None]
